FAERS Safety Report 20140818 (Version 1)
Quarter: 2021Q4

REPORT INFORMATION
  Report Type: Spontaneous
  Country: JP (occurrence: JP)
  Receive Date: 20211202
  Receipt Date: 20211202
  Transmission Date: 20220303
  Serious: Yes (Other)
  Sender: FDA-Public Use
  Company Number: JP-NOVARTISPH-NVSJ2021JP003480

PATIENT
  Sex: Female

DRUGS (1)
  1. TIMOLOL MALEATE\TRAVOPROST [Suspect]
     Active Substance: TIMOLOL MALEATE\TRAVOPROST
     Indication: Ocular hypertension
     Dosage: UNK
     Route: 047

REACTIONS (5)
  - Interstitial lung disease [Unknown]
  - Asthma [Unknown]
  - Cough [Unknown]
  - Oxygen saturation decreased [Unknown]
  - Contraindicated product administered [Unknown]
